FAERS Safety Report 8166608-5 (Version None)
Quarter: 2012Q1

REPORT INFORMATION
  Report Type: 
  Country: None (occurrence: None)
  Receive Date: 20120227
  Receipt Date: 20120222
  Transmission Date: 20120608
  Serious: Yes (Life-Threatening)
  Sender: FDA-Public Use
  Company Number: DE-SANOFI-AVENTIS-2011SA010736

PATIENT
  Age: 67 Year
  Sex: Male
  Weight: 110 kg

DRUGS (4)
  1. ULTIVA [Concomitant]
     Indication: SEDATIVE THERAPY
     Route: 042
     Dates: start: 20110119, end: 20110119
  2. MULTAQ [Suspect]
     Indication: ATRIAL FLUTTER
     Route: 048
     Dates: start: 20101201
  3. MARCUMAR [Concomitant]
     Route: 065
  4. PROPOFOL [Concomitant]
     Indication: SEDATIVE THERAPY
     Route: 042
     Dates: start: 20110119, end: 20110119

REACTIONS (3)
  - CARDIAC ARREST [None]
  - HAEMODYNAMIC INSTABILITY [None]
  - BLOOD PRESSURE DECREASED [None]
